FAERS Safety Report 5892637-8 (Version None)
Quarter: 2008Q3

REPORT INFORMATION
  Report Type: 
  Country: None (occurrence: None)
  Receive Date: 20080919
  Receipt Date: 20080909
  Transmission Date: 20090109
  Serious: Yes (Hospitalization, Other)
  Sender: FDA-Public Use
  Company Number: 2008BI010718

PATIENT
  Sex: Female
  Weight: 60.782 kg

DRUGS (3)
  1. TYSABRI [Suspect]
     Indication: MULTIPLE SCLEROSIS
     Dosage: 300 MG QM IV
     Route: 042
     Dates: start: 20070308, end: 20070511
  2. SPIRIVA [Concomitant]
  3. ADVAIR DISKUS 100/50 [Concomitant]

REACTIONS (8)
  - CARDIAC ARREST [None]
  - DISEASE RECURRENCE [None]
  - EMPHYSEMA [None]
  - INFLUENZA LIKE ILLNESS [None]
  - MYOCARDIAL INFARCTION [None]
  - PAIN [None]
  - RESPIRATORY ARREST [None]
  - VENTRICULAR FIBRILLATION [None]
